FAERS Safety Report 15909110 (Version 1)
Quarter: 2019Q1

REPORT INFORMATION
  Report Type: Spontaneous
  Country: US (occurrence: US)
  Receive Date: 20190204
  Receipt Date: 20190204
  Transmission Date: 20190417
  Serious: Yes (Other)
  Sender: FDA-Public Use
  Company Number: US-ABBVIE-18K-163-2250278-00

PATIENT
  Sex: Female

DRUGS (3)
  1. HUMIRA [Suspect]
     Active Substance: ADALIMUMAB
     Indication: HIDRADENITIS
     Route: 058
  2. PROBIOTICS [Concomitant]
     Active Substance: PROBIOTICS NOS
     Indication: PRODUCT USED FOR UNKNOWN INDICATION
  3. HUMIRA [Suspect]
     Active Substance: ADALIMUMAB
     Route: 058

REACTIONS (17)
  - Immunodeficiency [Not Recovered/Not Resolved]
  - Fatigue [Unknown]
  - Erythema [Unknown]
  - Influenza [Unknown]
  - Bronchitis [Unknown]
  - Pneumonia [Unknown]
  - Pruritus [Unknown]
  - Anxiety [Unknown]
  - Pain [Unknown]
  - Skin injury [Unknown]
  - Stress [Unknown]
  - Night sweats [Unknown]
  - Pneumonia [Unknown]
  - Drug ineffective [Unknown]
  - Hidradenitis [Not Recovered/Not Resolved]
  - Loss of personal independence in daily activities [Unknown]
  - Dermatitis contact [Unknown]

NARRATIVE: CASE EVENT DATE: 201704
